FAERS Safety Report 10058316 (Version 1)
Quarter: 2014Q2

REPORT INFORMATION
  Report Type: Spontaneous
  Country: US (occurrence: None)
  Receive Date: 20140403
  Receipt Date: 20140403
  Transmission Date: 20141212
  Serious: Yes (Hospitalization, Other)
  Sender: FDA-Public Use
  Company Number: None

PATIENT
  Sex: Male
  Weight: 110.68 kg

DRUGS (3)
  1. EPZICOM [Suspect]
     Indication: HIV INFECTION
     Dosage: ONE PILL, ONCE DAILY, MOUTH
     Route: 048
     Dates: start: 20110101, end: 20140325
  2. ACYCLOVR [Concomitant]
  3. EPZICOM [Concomitant]

REACTIONS (3)
  - Sedation [None]
  - Drug intolerance [None]
  - Unevaluable event [None]
